FAERS Safety Report 4692415-1 (Version None)
Quarter: 2005Q2

REPORT INFORMATION
  Report Type: 
  Country: None (occurrence: None)
  Receive Date: 20050615
  Receipt Date: 20050603
  Transmission Date: 20051028
  Serious: Yes (Other)
  Sender: FDA-Public Use
  Company Number: 2005085666

PATIENT
  Age: 56 Year
  Sex: Male

DRUGS (4)
  1. CELEBREX [Suspect]
     Indication: BACK PAIN
     Dosage: 400 MG (200 MG, 2 IN 1 D) ORAL
     Route: 048
     Dates: start: 20050530, end: 20050601
  2. RABEPRAZOLE SODIUM [Concomitant]
  3. PROPOFAN (CAFFEINE, CARBASALATE CALCIUM, CHLORPHENAMINE MALEATE, DEXTR [Concomitant]
  4. ETIFOXINE HYDROCHLORIDE [Concomitant]

REACTIONS (3)
  - EMOTIONAL DISORDER [None]
  - FATIGUE [None]
  - RECTAL HAEMORRHAGE [None]
